FAERS Safety Report 19157674 (Version 2)
Quarter: 2022Q3

REPORT INFORMATION
  Report Type: Spontaneous
  Country: DE (occurrence: DE)
  Receive Date: 20210420
  Receipt Date: 20220721
  Transmission Date: 20221027
  Serious: Yes (Congenital Anomaly, Other)
  Sender: FDA-Public Use
  Company Number: DE-EMA-DD-20210405-AGRAHARI_P-181349

PATIENT
  Age: 35 Week
  Sex: Female

DRUGS (3)
  1. BISOPROLOL [Suspect]
     Active Substance: BISOPROLOL
     Indication: Product used for unknown indication
     Dosage: UNTIL GW 7PLUS 5
  2. METOPROLOL [Suspect]
     Active Substance: METOPROLOL
     Indication: Product used for unknown indication
     Dosage: UNK
  3. IVABRADINE [Suspect]
     Active Substance: IVABRADINE
     Indication: Product used for unknown indication
     Dosage: 15 MILLIGRAM UNTIL GW 7PLUS 5

REACTIONS (11)
  - Atrial septal defect [Recovered/Resolved]
  - Cleft palate [Unknown]
  - Hypertrophic cardiomyopathy [Unknown]
  - Polyhydramnios [Recovered/Resolved]
  - Contraindicated product administered [Unknown]
  - Foetal exposure during pregnancy [Unknown]
  - Exposure during pregnancy [Recovered/Resolved]
  - Large for dates baby [Unknown]
  - Pre-eclampsia [Recovered/Resolved]
  - Premature rupture of membranes [Recovered/Resolved]
  - Off label use [Unknown]
